FAERS Safety Report 16019883 (Version 1)
Quarter: 2019Q1

REPORT INFORMATION
  Report Type: Report from Study
  Country: CA (occurrence: CA)
  Receive Date: 20190228
  Receipt Date: 20190228
  Transmission Date: 20190418
  Serious: Yes (Other)
  Sender: FDA-Public Use
  Company Number: CA-AMGEN-CANCT2019018467

PATIENT
  Age: 53 Year
  Sex: Female

DRUGS (1)
  1. AIMOVIG [Suspect]
     Active Substance: ERENUMAB-AOOE
     Indication: MIGRAINE
     Dosage: UNK
     Route: 065
     Dates: start: 20190127, end: 20190127

REACTIONS (8)
  - Injection site pain [Unknown]
  - Periarthritis [Unknown]
  - Muscle spasms [Unknown]
  - Chest discomfort [Unknown]
  - Headache [Unknown]
  - Myocardial infarction [Unknown]
  - Migraine [Not Recovered/Not Resolved]
  - Fatigue [Unknown]
